FAERS Safety Report 6778991-3 (Version None)
Quarter: 2010Q2

REPORT INFORMATION
  Report Type: 
  Country: None (occurrence: None)
  Receive Date: 20100618
  Receipt Date: 20100609
  Transmission Date: 20101027
  Serious: Yes (Other)
  Sender: FDA-Public Use
  Company Number: US-SANOFI-AVENTIS-2010SA033634

PATIENT
  Age: 69 Year
  Sex: Female

DRUGS (12)
  1. MULTAQ [Suspect]
     Indication: ATRIAL FIBRILLATION
     Route: 048
     Dates: start: 20091101
  2. MULTAQ [Suspect]
     Indication: ATRIAL FLUTTER
     Route: 048
     Dates: start: 20091101
  3. MULTAQ [Suspect]
     Route: 048
     Dates: end: 20100413
  4. MULTAQ [Suspect]
     Route: 048
     Dates: end: 20100413
  5. MULTAQ [Suspect]
     Route: 048
     Dates: start: 20100413
  6. MULTAQ [Suspect]
     Route: 048
     Dates: start: 20100413
  7. AMIODARONE [Concomitant]
     Indication: ATRIAL FIBRILLATION
     Route: 048
     Dates: start: 20080901, end: 20090801
  8. AMIODARONE [Concomitant]
     Indication: ATRIAL FLUTTER
     Route: 048
     Dates: start: 20080901, end: 20090801
  9. DILTIAZEM [Concomitant]
     Dates: end: 20091101
  10. DILTIAZEM [Concomitant]
     Dates: start: 20091101
  11. CARVEDILOL [Concomitant]
  12. WARFARIN [Concomitant]

REACTIONS (7)
  - ATRIAL FIBRILLATION [None]
  - DYSPNOEA [None]
  - HEART RATE DECREASED [None]
  - INCORRECT DOSE ADMINISTERED [None]
  - OEDEMA PERIPHERAL [None]
  - SOMNOLENCE [None]
  - WEIGHT INCREASED [None]
